FAERS Safety Report 15545227 (Version 1)
Quarter: 2018Q4

REPORT INFORMATION
  Report Type: Spontaneous
  Country: US (occurrence: US)
  Receive Date: 20181024
  Receipt Date: 20181024
  Transmission Date: 20190205
  Serious: No
  Sender: FDA-Public Use
  Company Number: US-PFIZER INC-2018429644

PATIENT
  Sex: Male

DRUGS (1)
  1. DEPO-PROVERA [Suspect]
     Active Substance: MEDROXYPROGESTERONE ACETATE
     Dosage: 300 MG, UNK ((2-150MG INJECTIONS) OF DEPO-PROVERA EVERY TWO WEEKS)

REACTIONS (3)
  - Sexual dysfunction [Unknown]
  - Off label use [Unknown]
  - Product use issue [Unknown]
